FAERS Safety Report 11977842 (Version 4)
Quarter: 2016Q2

REPORT INFORMATION
  Report Type: Spontaneous
  Country: JP (occurrence: JP)
  Receive Date: 20160129
  Receipt Date: 20160506
  Transmission Date: 20160815
  Serious: Yes (Hospitalization, Other)
  Sender: FDA-Public Use
  Company Number: JP-GILEAD-2016-0194086

PATIENT
  Age: 82 Year
  Sex: Female
  Weight: 35.5 kg

DRUGS (8)
  1. THYRADIN S [Concomitant]
     Active Substance: LEVOTHYROXINE SODIUM
     Indication: AUTOIMMUNE THYROIDITIS
     Dosage: 50 MG, UNK
     Route: 048
  2. BROTIZOLAM [Suspect]
     Active Substance: BROTIZOLAM
     Indication: INSOMNIA
     Dosage: 0.25 MG, UNK
     Route: 048
     Dates: end: 20160117
  3. PROMAC                             /00024401/ [Concomitant]
     Active Substance: NITROFURANTOIN
     Indication: CHRONIC GASTRITIS
     Dosage: 150 MG, UNK
     Route: 048
  4. HARVONI [Suspect]
     Active Substance: LEDIPASVIR\SOFOSBUVIR
     Indication: CHRONIC HEPATITIS C
     Dosage: 1 DF, UNK
     Route: 048
     Dates: start: 20151118, end: 20160101
  5. OLMETEC [Concomitant]
     Active Substance: OLMESARTAN MEDOXOMIL
     Indication: HYPERTENSION
     Dosage: 10 MG, UNK
     Route: 048
  6. LIVACT                             /00847901/ [Concomitant]
     Active Substance: ISOLEUCINE\LEUCINE\VALINE
     Indication: HYPOALBUMINAEMIA
     Dosage: 12.45 G, UNK
     Route: 048
     Dates: start: 201601
  7. ONEALFA [Concomitant]
     Active Substance: ALFACALCIDOL
     Indication: OSTEOPOROSIS
     Dosage: 1.0 UG, UNK
     Route: 048
  8. NEXIUM [Concomitant]
     Active Substance: ESOMEPRAZOLE MAGNESIUM
     Indication: GASTROOESOPHAGEAL REFLUX DISEASE
     Dosage: 20 MG, UNK
     Route: 048

REACTIONS (3)
  - Anaemia [Recovering/Resolving]
  - Gastrointestinal haemorrhage [Recovering/Resolving]
  - Hepatic encephalopathy [Recovering/Resolving]

NARRATIVE: CASE EVENT DATE: 20160101
